FAERS Safety Report 26036885 (Version 1)
Quarter: 2025Q4

REPORT INFORMATION
  Report Type: Report from Study
  Country: EU (occurrence: EU)
  Receive Date: 20251112
  Receipt Date: 20251112
  Transmission Date: 20260117
  Serious: Yes (Hospitalization)
  Sender: MYLAN
  Company Number: None

PATIENT
  Age: 73 Year
  Sex: Male
  Weight: 57.1 kg

DRUGS (10)
  1. OXALIPLATIN [Suspect]
     Active Substance: OXALIPLATIN
     Indication: Colorectal cancer
     Dosage: 223.6 MILLIGRAM, Q3W (EVERY 3 WEEK)
     Dates: start: 20130128, end: 20130311
  2. AVASTIN [Suspect]
     Active Substance: BEVACIZUMAB
     Indication: Colorectal cancer metastatic
     Dosage: 487.5 MILLIGRAM, Q3W (EVERY 3 WEEK)
     Dates: start: 20130128, end: 20130311
  3. XELODA [Suspect]
     Active Substance: CAPECITABINE
     Indication: Colorectal cancer
     Dosage: 1720 MILLIGRAM (1-14 DAYS AFTER BEVACIZUMAB INFUSION)
     Dates: start: 20130128, end: 20130210
  4. XELODA [Suspect]
     Active Substance: CAPECITABINE
     Dosage: 1000 MILLIGRAM
     Dates: start: 20130218, end: 20130303
  5. XELODA [Suspect]
     Active Substance: CAPECITABINE
     Dosage: 1000 MILLIGRAM
     Dates: start: 20130311, end: 20130324
  6. PANTOZOL [Concomitant]
     Active Substance: PANTOPRAZOLE SODIUM
     Indication: Abdominal pain upper
     Dosage: 40 MILLIGRAM
  7. TAMSULOSIN [Concomitant]
     Active Substance: TAMSULOSIN
     Indication: Benign prostatic hyperplasia
     Dosage: UNK
  8. Tavor [Concomitant]
     Dosage: 0.1 MILLIGRAM
  9. Mst [Concomitant]
     Indication: Pain
     Dosage: UNK
  10. Novalgin [Concomitant]
     Indication: Pain
     Dosage: UNK

REACTIONS (9)
  - General physical health deterioration [Recovered/Resolved]
  - Erythema multiforme [Not Recovered/Not Resolved]
  - Weight decreased [Not Recovered/Not Resolved]
  - Pyrexia [Recovered/Resolved]
  - Diarrhoea [Recovered/Resolved]
  - Dyspnoea [Recovered/Resolved]
  - Fatigue [Not Recovered/Not Resolved]
  - Infection [Recovered/Resolved]
  - Palmar-plantar erythrodysaesthesia syndrome [Not Recovered/Not Resolved]

NARRATIVE: CASE EVENT DATE: 20130402
